FAERS Safety Report 7596141-0 (Version None)
Quarter: 2011Q3

REPORT INFORMATION
  Report Type: 
  Country: None (occurrence: None)
  Receive Date: 20110707
  Receipt Date: 20110629
  Transmission Date: 20111222
  Serious: Yes (Other)
  Sender: FDA-Public Use
  Company Number: US-US-EMD SERONO, INC.-7068670

PATIENT
  Sex: Female
  Weight: 98 kg

DRUGS (2)
  1. REBIF [Suspect]
     Indication: MULTIPLE SCLEROSIS
     Route: 058
     Dates: start: 20080529
  2. STEROID THERAPY [Suspect]
     Indication: MULTIPLE SCLEROSIS RELAPSE
     Dates: start: 20110101

REACTIONS (9)
  - DIABETES MELLITUS [None]
  - PRECANCEROUS CELLS PRESENT [None]
  - WEIGHT DECREASED [None]
  - INJECTION SITE INFECTION [None]
  - DECREASED APPETITE [None]
  - INJECTION SITE ERYTHEMA [None]
  - BIPOLAR DISORDER [None]
  - INJECTION SITE PAIN [None]
  - MULTIPLE SCLEROSIS RELAPSE [None]
